FAERS Safety Report 8400182-0 (Version None)
Quarter: 2012Q2

REPORT INFORMATION
  Report Type: 
  Country: None (occurrence: None)
  Receive Date: 20120531
  Receipt Date: 20120525
  Transmission Date: 20120825
  Serious: Yes (Hospitalization)
  Sender: FDA-Public Use
  Company Number: US-BAYER-2012-053330

PATIENT

DRUGS (1)
  1. NAPROXEN (ALEVE) [Suspect]

REACTIONS (4)
  - BURNING SENSATION [None]
  - PANIC ATTACK [None]
  - HYPERSENSITIVITY [None]
  - GENERALISED ERYTHEMA [None]
